FAERS Safety Report 25053825 (Version 1)
Quarter: 2025Q1

REPORT INFORMATION
  Report Type: Spontaneous
  Country: US (occurrence: US)
  Receive Date: 20250307
  Receipt Date: 20250307
  Transmission Date: 20250409
  Serious: No
  Sender: SANOFI AVENTIS
  Company Number: US-SANOFI-02431765

PATIENT
  Age: 19 Year
  Sex: Female

DRUGS (2)
  1. DUPIXENT [Suspect]
     Active Substance: DUPILUMAB
     Indication: Eczema
     Route: 065
     Dates: start: 20250225, end: 20250225
  2. DUPIXENT [Suspect]
     Active Substance: DUPILUMAB
     Indication: Dermatitis atopic

REACTIONS (8)
  - Malaise [Unknown]
  - Breast discomfort [Unknown]
  - Breast discharge [Unknown]
  - Pyrexia [Not Recovered/Not Resolved]
  - Condition aggravated [Not Recovered/Not Resolved]
  - Breast mass [Not Recovered/Not Resolved]
  - Breast swelling [Unknown]
  - Erythema [Unknown]

NARRATIVE: CASE EVENT DATE: 20250227
